FAERS Safety Report 8941000 (Version 8)
Quarter: 2016Q3

REPORT INFORMATION
  Report Type: Spontaneous
  Country: US (occurrence: US)
  Receive Date: 20121203
  Receipt Date: 20160920
  Transmission Date: 20161109
  Serious: Yes (Hospitalization, Disabling)
  Sender: FDA-Public Use
  Company Number: US-009507513-1211USA012343

PATIENT
  Sex: Female
  Weight: 53.61 kg

DRUGS (4)
  1. CALCIUM (UNSPECIFIED) (+) VITAMIN D (UNSPECIFIED) [Concomitant]
     Active Substance: CALCIUM CARBONATE\VITAMIN D
     Indication: VITAMIN D DEFICIENCY
     Dosage: UNK, BID
     Route: 048
     Dates: start: 1997
  2. FOSAMAX [Suspect]
     Active Substance: ALENDRONATE SODIUM
     Indication: OSTEOPOROSIS
     Dosage: 10 MG, UNK
     Route: 048
  3. CALCIUM (UNSPECIFIED) (+) VITAMIN D (UNSPECIFIED) [Concomitant]
     Active Substance: CALCIUM CARBONATE\VITAMIN D
     Indication: CALCIUM DEFICIENCY
  4. FOSAMAX [Suspect]
     Active Substance: ALENDRONATE SODIUM
     Indication: OSTEOPENIA
     Dosage: 70 MG, UNK
     Route: 048
     Dates: end: 2011

REACTIONS (20)
  - Gingival disorder [Unknown]
  - Foot fracture [Not Recovered/Not Resolved]
  - Fall [Unknown]
  - Gingival bleeding [Unknown]
  - Foot fracture [Not Recovered/Not Resolved]
  - Headache [Unknown]
  - Foot operation [Unknown]
  - Pain in extremity [Not Recovered/Not Resolved]
  - Osteoporosis [Unknown]
  - Viral infection [Unknown]
  - Foot operation [Unknown]
  - Acute sinusitis [Unknown]
  - Impaired healing [Unknown]
  - Mouth swelling [Unknown]
  - Blood cholesterol increased [Not Recovered/Not Resolved]
  - Fracture [Unknown]
  - Hypertension [Not Recovered/Not Resolved]
  - Pharyngitis [Unknown]
  - Cough [Unknown]
  - Tonsillectomy [Unknown]

NARRATIVE: CASE EVENT DATE: 2005
